FAERS Safety Report 25153861 (Version 2)
Quarter: 2025Q2

REPORT INFORMATION
  Report Type: Spontaneous
  Country: US (occurrence: US)
  Receive Date: 20250403
  Receipt Date: 20250528
  Transmission Date: 20250716
  Serious: No
  Sender: TEVA
  Company Number: US-TEVA-VS-3302618

PATIENT
  Age: 39 Year
  Sex: Male

DRUGS (6)
  1. UZEDY [Suspect]
     Active Substance: RISPERIDONE
     Indication: Product used for unknown indication
     Dosage: 100/0.28MG/ML
     Route: 065
     Dates: start: 20250108
  2. UZEDY [Suspect]
     Active Substance: RISPERIDONE
     Dosage: 100/0.28MG/ML,
     Route: 065
     Dates: start: 20250219
  3. ATORVASTATIN [Concomitant]
     Active Substance: ATORVASTATIN
     Indication: Product used for unknown indication
     Route: 065
  4. BENADRYL [Concomitant]
     Active Substance: DIPHENHYDRAMINE HYDROCHLORIDE
     Indication: Product used for unknown indication
     Route: 065
  5. LEXAPRO [Concomitant]
     Active Substance: ESCITALOPRAM OXALATE
     Indication: Product used for unknown indication
     Route: 065
  6. DEVICE [Suspect]
     Active Substance: DEVICE

REACTIONS (3)
  - Dizziness [Recovered/Resolved]
  - Fatigue [Recovered/Resolved]
  - Inappropriate schedule of product administration [Unknown]

NARRATIVE: CASE EVENT DATE: 20250219
